FAERS Safety Report 9519228 (Version 1)
Quarter: 2013Q1

REPORT INFORMATION
  Report Type: Spontaneous
  Country: US (occurrence: None)
  Receive Date: 20130305
  Receipt Date: 20130305
  Transmission Date: 20140127
  Serious: Yes (Other)
  Sender: FDA-Public Use
  Company Number: 163-21880-11123410

PATIENT
  Age: 89 Year
  Sex: Female

DRUGS (13)
  1. REVLIMID [Suspect]
     Indication: PLASMA CELL MYELOMA
     Route: 048
     Dates: start: 20111125
  2. ZOMETA (ZOLEDRONIC ACID) (INJECTION) [Concomitant]
  3. ALPRAZOLAM (ALPRAZOLAM) (TABLETS) [Concomitant]
  4. MULTI 50+ (MULTIVITAMINS) (CAPSULES) [Concomitant]
  5. ARANESP (DARBEPOETIN ALFA) (INJECTION) [Concomitant]
  6. ASPIRIN (ACETYLSALICYLIC ACID) (TABLETS) [Concomitant]
  7. MULTI-VIT (MULTI-VIT) (TABLETS) [Concomitant]
  8. SIMVASTATIN [Concomitant]
  9. OMEPRAZOLE (OMEPRAZOLE) (CAPSULES) [Concomitant]
  10. CARB/LEVO (SINEMET) (TABLETS) [Concomitant]
  11. LEVOTHYROXIN (LEVOTHYROXINE SODIUM) (TABLETS) [Concomitant]
  12. ATENOLOL (ATENOLOL) (TABLETS) [Concomitant]
  13. DIOVAN (VALSARTAN) (TABLETS) [Concomitant]

REACTIONS (2)
  - Anaemia [None]
  - Fatigue [None]
